FAERS Safety Report 17418255 (Version 1)
Quarter: 2020Q1

REPORT INFORMATION
  Report Type: Spontaneous
  Country: US (occurrence: US)
  Receive Date: 20200214
  Receipt Date: 20200214
  Transmission Date: 20200409
  Serious: Yes (Hospitalization)
  Sender: FDA-Public Use
  Company Number: None

PATIENT
  Age: 53 Year
  Sex: Male
  Weight: 100.8 kg

DRUGS (1)
  1. EMPAGLIFLOZIN/METFORMIN [Suspect]
     Active Substance: EMPAGLIFLOZIN\METFORMIN HYDROCHLORIDE
     Indication: TYPE 2 DIABETES MELLITUS
     Route: 048
     Dates: end: 20191116

REACTIONS (13)
  - Feeding disorder [None]
  - Metabolic acidosis [None]
  - Decreased appetite [None]
  - Hiatus hernia [None]
  - Abdominal pain upper [None]
  - Chest pain [None]
  - Fatigue [None]
  - Nausea [None]
  - Vomiting [None]
  - Intentional dose omission [None]
  - Euglycaemic diabetic ketoacidosis [None]
  - Nodule [None]
  - Dysphagia [None]

NARRATIVE: CASE EVENT DATE: 20191116
